FAERS Safety Report 19980158 (Version 2)
Quarter: 2021Q4

REPORT INFORMATION
  Report Type: Spontaneous
  Country: SE (occurrence: SE)
  Receive Date: 20211021
  Receipt Date: 20211116
  Transmission Date: 20220304
  Serious: Yes (Hospitalization)
  Sender: FDA-Public Use
  Company Number: SE-NEBO-PC007521

PATIENT
  Age: 36 Year
  Sex: Female
  Weight: 80 kg

DRUGS (5)
  1. IRON ISOMALTOSIDE 1000 [Suspect]
     Active Substance: IRON ISOMALTOSIDE 1000
     Indication: Iron deficiency anaemia
     Route: 042
     Dates: start: 20210917
  2. Covid vaccination [Concomitant]
     Indication: COVID-19 immunisation
     Dates: start: 20210915
  3. FOLIC ACID [Concomitant]
     Active Substance: FOLIC ACID
  4. CALCIUM CARBONATE\CHOLECALCIFEROL [Concomitant]
     Active Substance: CALCIUM CARBONATE\CHOLECALCIFEROL
  5. FERROUS SULFATE [Concomitant]
     Active Substance: FERROUS SULFATE

REACTIONS (2)
  - Anaphylactic reaction [Recovered/Resolved]
  - Uterine haemorrhage [Recovered/Resolved]

NARRATIVE: CASE EVENT DATE: 20210917
